FAERS Safety Report 6768266-0 (Version None)
Quarter: 2010Q2

REPORT INFORMATION
  Report Type: 
  Country: None (occurrence: None)
  Receive Date: 20100614
  Receipt Date: 20100603
  Transmission Date: 20101027
  Serious: Yes (Other)
  Sender: FDA-Public Use
  Company Number: CA-JNJFOC-20100602351

PATIENT
  Sex: Female

DRUGS (2)
  1. REMICADE [Suspect]
     Indication: BEHCET'S SYNDROME
     Dosage: ON AND OFF 3-4 TIMES FOR THE PAST COUPLE OF YEARS
     Route: 042
  2. CYCLOPHOSPHAMIDE [Concomitant]
     Indication: BEHCET'S SYNDROME
     Dosage: 6 MONTHS

REACTIONS (2)
  - COMA [None]
  - DRUG SPECIFIC ANTIBODY PRESENT [None]
